FAERS Safety Report 9521391 (Version 1)
Quarter: 2013Q1

REPORT INFORMATION
  Report Type: Spontaneous
  Country: US (occurrence: None)
  Receive Date: 20130305
  Receipt Date: 20130305
  Transmission Date: 20140127
  Serious: Yes (Other)
  Sender: FDA-Public Use
  Company Number: 163-21880-12072094

PATIENT
  Age: 75 Year
  Sex: Female

DRUGS (11)
  1. REVLIMID (LENALIDOMIDE) (CAPSULES) [Suspect]
     Indication: PLASMA CELL MYELOMA
     Dosage: 25 MG, 21 IN 21 D, PO??01MAY2012 - TEMPORARILY INTERRUPTED
     Route: 048
     Dates: start: 20120501
  2. SENNA [Concomitant]
  3. MIRALAX [Concomitant]
  4. ASPIRIN ADULT LOW STRENGTH (ACETYLSALICYLIC ACID) [Concomitant]
  5. MORPHINE SULFATE CR (MORPHINE SULFATE) [Concomitant]
  6. ZOMETA (ZOLEDRONIC ACID) [Concomitant]
  7. DECADRON (DEXAMETHASONE) [Concomitant]
  8. TOPAMAX (TOPIRAMATE) [Concomitant]
  9. PRIMIDONE (PRIMIDONE) [Concomitant]
  10. DIOVAN (VALSARTAN) [Concomitant]
  11. METOPROLOL (METOPROLOL) [Concomitant]

REACTIONS (1)
  - Neutropenia [None]
